FAERS Safety Report 12309822 (Version 2)
Quarter: 2016Q2

REPORT INFORMATION
  Report Type: Spontaneous
  Country: PL (occurrence: PL)
  Receive Date: 20160427
  Receipt Date: 20160509
  Transmission Date: 20160815
  Serious: Yes (Other)
  Sender: FDA-Public Use
  Company Number: PL-SUN PHARMACEUTICAL INDUSTRIES LTD-2016RR-115479

PATIENT
  Age: 57 Year
  Sex: Male

DRUGS (5)
  1. PACLITAXEL. [Suspect]
     Active Substance: PACLITAXEL
     Indication: LUNG ADENOCARCINOMA METASTATIC
     Dosage: 6 CYCLES, 2508 MG CUMULATIVE DOSE
     Route: 065
  2. CARBOPLATIN. [Suspect]
     Active Substance: CARBOPLATIN
     Indication: LUNG ADENOCARCINOMA METASTATIC
     Dosage: 6 CYCLES, 3700 MG CUMULATIVE DOSE
     Route: 065
  3. VINTAFOLIDE [Suspect]
     Active Substance: VINTAFOLIDE
     Indication: LUNG ADENOCARCINOMA METASTATIC
     Dosage: 26 INJECTIONS, 90 MG CUMULATIVE DOSE
     Route: 065
  4. BEVACIZUMAB [Suspect]
     Active Substance: BEVACIZUMAB
     Indication: LUNG ADENOCARCINOMA METASTATIC
     Dosage: 72 INFUSIONS, 87480 MG CUMULATIVE DOSE
     Route: 065
  5. DOCETAXEL. [Suspect]
     Active Substance: DOCETAXEL
     Indication: LUNG ADENOCARCINOMA METASTATIC
     Dosage: 9 CYCLES, 1710 MG CUMULATIVE DOSE
     Route: 065

REACTIONS (3)
  - Proteinuria [Unknown]
  - Disease progression [Unknown]
  - Peripheral sensory neuropathy [Unknown]
